FAERS Safety Report 22946866 (Version 3)
Quarter: 2023Q4

REPORT INFORMATION
  Report Type: Spontaneous
  Country: AR (occurrence: AR)
  Receive Date: 20230915
  Receipt Date: 20231122
  Transmission Date: 20240110
  Serious: Yes (Hospitalization)
  Sender: FDA-Public Use
  Company Number: AR-002147023-NVSC2023AR193946

PATIENT
  Sex: Female

DRUGS (1)
  1. OMNITROPE [Suspect]
     Active Substance: SOMATROPIN
     Indication: Growth hormone deficiency
     Dosage: 15 MG
     Route: 065
     Dates: start: 20170501

REACTIONS (5)
  - Blood urine present [Recovered/Resolved]
  - Sluggishness [Unknown]
  - Urine sodium increased [Unknown]
  - Behaviour disorder [Unknown]
  - Product supply issue [Unknown]

NARRATIVE: CASE EVENT DATE: 20210101
